FAERS Safety Report 8550188-6 (Version None)
Quarter: 2012Q3

REPORT INFORMATION
  Report Type: 
  Country: None (occurrence: None)
  Receive Date: 20120730
  Receipt Date: 20110325
  Transmission Date: 20120928
  Serious: No
  Sender: FDA-Public Use
  Company Number: US-ALLERGAN-1104286US

PATIENT
  Age: 56 Year
  Sex: Female

DRUGS (8)
  1. LUMIGAN [Suspect]
     Indication: GLAUCOMA
     Dosage: UNK
     Dates: start: 20080101, end: 20080101
  2. XALATAN [Suspect]
     Indication: GLAUCOMA
     Dosage: 1 GTT, QD
     Route: 047
     Dates: start: 20021201, end: 20080101
  3. TRAVATAN Z [Suspect]
     Indication: GLAUCOMA
     Dosage: UNK
     Dates: start: 20080101, end: 20080101
  4. HYDROMORPHONE HYDROCHLORIDE [Concomitant]
     Indication: PRODUCT USED FOR UNKNOWN INDICATION
     Dosage: 1 MG, QD
  5. VALIUM [Concomitant]
     Indication: PRODUCT USED FOR UNKNOWN INDICATION
     Dosage: ONCE A DAY
  6. PREMARIN [Concomitant]
     Indication: PRODUCT USED FOR UNKNOWN INDICATION
     Dosage: UNK
  7. PROTONIX [Concomitant]
     Indication: PRODUCT USED FOR UNKNOWN INDICATION
     Dosage: 40 MG, QD
  8. NORCO [Concomitant]
     Indication: PRODUCT USED FOR UNKNOWN INDICATION
     Dosage: 10/325 MG; 3-4 TIMES DAILY

REACTIONS (6)
  - HEADACHE [None]
  - PHOTOSENSITIVITY REACTION [None]
  - BURNING SENSATION [None]
  - EYE IRRITATION [None]
  - VISUAL ACUITY REDUCED [None]
  - EYE DISCHARGE [None]
